FAERS Safety Report 12897600 (Version 1)
Quarter: 2016Q4

REPORT INFORMATION
  Report Type: Spontaneous
  Country: CA (occurrence: CA)
  Receive Date: 20161031
  Receipt Date: 20161031
  Transmission Date: 20170207
  Serious: Yes (Other)
  Sender: FDA-Public Use
  Company Number: CA-CELGENEUS-CAN-2016104604

PATIENT
  Age: 64 Year

DRUGS (5)
  1. BLOOD [Concomitant]
     Active Substance: WHOLE BLOOD
     Indication: HEREDITARY HAEMORRHAGIC TELANGIECTASIA
     Route: 041
  2. THALOMID [Suspect]
     Active Substance: THALIDOMIDE
     Indication: OFF LABEL USE
  3. BLOOD [Concomitant]
     Active Substance: WHOLE BLOOD
     Route: 041
  4. IRON [Concomitant]
     Active Substance: IRON
     Indication: HEREDITARY HAEMORRHAGIC TELANGIECTASIA
     Route: 041
  5. THALOMID [Suspect]
     Active Substance: THALIDOMIDE
     Indication: EPISTAXIS
     Route: 048

REACTIONS (1)
  - Epistaxis [Recovering/Resolving]
